FAERS Safety Report 5952341-4 (Version None)
Quarter: 2008Q4

REPORT INFORMATION
  Report Type: 
  Country: None (occurrence: None)
  Receive Date: 20081113
  Receipt Date: 20081104
  Transmission Date: 20090506
  Serious: Yes (Other)
  Sender: FDA-Public Use
  Company Number: FR-PFIZER INC-2008094138

PATIENT
  Sex: Male

DRUGS (1)
  1. CHAMPIX [Suspect]

REACTIONS (2)
  - CYST [None]
  - HYPERSENSITIVITY [None]
